FAERS Safety Report 15865164 (Version 4)
Quarter: 2019Q2

REPORT INFORMATION
  Report Type: Spontaneous
  Country: US (occurrence: US)
  Receive Date: 20190124
  Receipt Date: 20190516
  Transmission Date: 20190711
  Serious: Yes (Hospitalization)
  Sender: FDA-Public Use
  Company Number: US-VIFOR (INTERNATIONAL) INC.-VIT-2019-00355

PATIENT
  Age: 72 Year
  Sex: Female
  Weight: 108.05 kg

DRUGS (25)
  1. HYDRALAZINE HCL [Concomitant]
     Active Substance: HYDRALAZINE HYDROCHLORIDE
  2. ARANESP (ALBUMIN FREE) [Concomitant]
  3. ELIQUIS [Concomitant]
     Active Substance: APIXABAN
  4. LEVOTHYROXINE SODIUM. [Concomitant]
     Active Substance: LEVOTHYROXINE SODIUM
  5. NORVASC [Concomitant]
     Active Substance: AMLODIPINE BESYLATE
  6. VITAMIN B12 [Concomitant]
     Active Substance: CYANOCOBALAMIN
  7. ASPIRIN. [Concomitant]
     Active Substance: ASPIRIN
  8. LIPITOR [Concomitant]
     Active Substance: ATORVASTATIN CALCIUM
  9. METOPROLOL TARTRATE. [Concomitant]
     Active Substance: METOPROLOL TARTRATE
  10. PANTOPRAZOLE SODIUM. [Concomitant]
     Active Substance: PANTOPRAZOLE SODIUM
  11. SKELAXIN [Concomitant]
     Active Substance: METAXALONE
  12. VELTASSA [Suspect]
     Active Substance: PATIROMER
     Indication: CHRONIC KIDNEY DISEASE
     Route: 048
     Dates: start: 201901
  13. DILAUDID [Concomitant]
     Active Substance: HYDROMORPHONE HYDROCHLORIDE
  14. HYDROCODONE-ACETAMINOPHEN [Concomitant]
     Active Substance: ACETAMINOPHEN\HYDROCODONE
  15. HYDROCORTISONE. [Concomitant]
     Active Substance: HYDROCORTISONE
  16. PROCRIT [Concomitant]
     Active Substance: ERYTHROPOIETIN
  17. AMIODARONE HCL [Concomitant]
     Active Substance: AMIODARONE HYDROCHLORIDE
  18. LASIX [Concomitant]
     Active Substance: FUROSEMIDE
  19. MILK OF MAGNESIA [Concomitant]
     Active Substance: MAGNESIUM HYDROXIDE
  20. OXYCODONE HYDROCHLORIDE. [Concomitant]
     Active Substance: OXYCODONE HYDROCHLORIDE
  21. PREDNISONE. [Concomitant]
     Active Substance: PREDNISONE
  22. ROCALTROL [Concomitant]
     Active Substance: CALCITRIOL
  23. VITAMIN D3 [Concomitant]
     Active Substance: CHOLECALCIFEROL
  24. VELTASSA [Suspect]
     Active Substance: PATIROMER
     Indication: HYPERKALAEMIA
     Route: 048
     Dates: start: 20170503, end: 201901
  25. CLONIDINE HCL [Concomitant]
     Active Substance: CLONIDINE HYDROCHLORIDE

REACTIONS (6)
  - Product dose omission [Unknown]
  - Fall [Recovering/Resolving]
  - Lower limb fracture [Not Recovered/Not Resolved]
  - Blood potassium increased [Recovering/Resolving]
  - Transfusion [Unknown]
  - Skin laceration [Recovering/Resolving]

NARRATIVE: CASE EVENT DATE: 201901
